FAERS Safety Report 10427087 (Version 1)
Quarter: 2014Q3

REPORT INFORMATION
  Report Type: Spontaneous
  Country: US (occurrence: None)
  Receive Date: 20140725
  Receipt Date: 20140725
  Transmission Date: 20150326
  Serious: No
  Sender: FDA-Public Use
  Company Number: AP356-00910-SPO-US

PATIENT
  Age: 67 Year
  Sex: Female
  Weight: 92 kg

DRUGS (11)
  1. SIMVASTIN (SIMVASTATIN) [Concomitant]
  2. PULMICORT TURBUHALER [Concomitant]
     Active Substance: BUDESONIDE
  3. VITAMINS (MULTIPLE VITAMINS) [Concomitant]
  4. BELVIQ [Suspect]
     Active Substance: LORCASERIN HYDROCHLORIDE
     Indication: WEIGHT DECREASED
     Route: 048
     Dates: start: 20140609, end: 20140616
  5. LOSARTAN [Concomitant]
     Active Substance: LOSARTAN
  6. IPRATROPIUM [Concomitant]
     Active Substance: IPRATROPIUM
  7. METOPROLOL [Concomitant]
     Active Substance: METOPROLOL
  8. PRILOSEC (OMEPRAZOLE) [Concomitant]
     Active Substance: OMEPRAZOLE MAGNESIUM
  9. SYNTHROID [Concomitant]
     Active Substance: LEVOTHYROXINE SODIUM
  10. FLUOXETINE [Concomitant]
     Active Substance: FLUOXETINE\FLUOXETINE HYDROCHLORIDE
  11. LYRICA [Concomitant]
     Active Substance: PREGABALIN

REACTIONS (3)
  - Blood pressure decreased [None]
  - Arthralgia [None]
  - Intentional underdose [None]

NARRATIVE: CASE EVENT DATE: 201406
